FAERS Safety Report 12786490 (Version 1)
Quarter: 2016Q3

REPORT INFORMATION
  Report Type: Spontaneous
  Country: US (occurrence: US)
  Receive Date: 20160927
  Receipt Date: 20160927
  Transmission Date: 20161109
  Serious: No
  Sender: FDA-Public Use
  Company Number: US-FRI-1000084996

PATIENT
  Sex: Male

DRUGS (2)
  1. LINZESS [Suspect]
     Active Substance: LINACLOTIDE
     Dosage: 145 MCG EVERY OTHER DAY
  2. LINZESS [Suspect]
     Active Substance: LINACLOTIDE
     Dosage: 290 ?G, QD
     Dates: start: 201506

REACTIONS (9)
  - Adverse drug reaction [Unknown]
  - Diarrhoea [Unknown]
  - Hypoaesthesia [Unknown]
  - Off label use [Unknown]
  - Drug effect decreased [Unknown]
  - Paraesthesia [Unknown]
  - Headache [Unknown]
  - Drug dose omission [Unknown]
  - Intentional product misuse [Unknown]
